FAERS Safety Report 8078628-X (Version None)
Quarter: 2012Q1

REPORT INFORMATION
  Report Type: 
  Country: None (occurrence: None)
  Receive Date: 20120124
  Receipt Date: 20120123
  Transmission Date: 20120608
  Serious: Yes (Hospitalization, Other)
  Sender: FDA-Public Use
  Company Number: SP03549

PATIENT
  Age: 85 Year
  Sex: Female

DRUGS (8)
  1. EPERISONE HYDROCHLORIDE [Concomitant]
  2. AMLODIPINE BESYLATE [Concomitant]
  3. VISICOL [Suspect]
     Indication: BOWEL PREPARATION
     Dosage: 50 GM, ORAL
     Route: 048
     Dates: start: 20110208, end: 20110208
  4. AZULENE SULFONATE SODIUM/L-GLUTAMINE [Concomitant]
  5. ALFACALCIDOL [Concomitant]
  6. ETODOLAC [Concomitant]
  7. CANDESARTAN CILEXETIL [Concomitant]
  8. BEZAFIBRATE [Concomitant]

REACTIONS (7)
  - TUBULOINTERSTITIAL NEPHRITIS [None]
  - HYPOAESTHESIA [None]
  - RENAL FAILURE ACUTE [None]
  - RENAL TUBULAR NECROSIS [None]
  - MALAISE [None]
  - ACUTE PHOSPHATE NEPHROPATHY [None]
  - DECREASED APPETITE [None]
